FAERS Safety Report 9325393 (Version 1)
Quarter: 2013Q2

REPORT INFORMATION
  Report Type: Spontaneous
  Country: JP (occurrence: JP)
  Receive Date: 20130604
  Receipt Date: 20130604
  Transmission Date: 20140414
  Serious: Yes (Hospitalization)
  Sender: FDA-Public Use
  Company Number: JP-009507513-1305JPN017444

PATIENT
  Sex: 0

DRUGS (1)
  1. ISENTRESS TABLETS 400MG [Suspect]
     Route: 048

REACTIONS (1)
  - Gastrointestinal haemorrhage [Unknown]
